FAERS Safety Report 9888235 (Version 2)
Quarter: 2014Q1

REPORT INFORMATION
  Report Type: Spontaneous
  Country: FR (occurrence: None)
  Receive Date: 20140207
  Receipt Date: 20140218
  Transmission Date: 20141002
  Serious: Yes (Other)
  Sender: FDA-Public Use
  Company Number: FR-MDCO-14-00025

PATIENT
  Age: 47 Year
  Sex: Female

DRUGS (6)
  1. ANGIOMAX [Suspect]
     Indication: ACUTE MYOCARDIAL INFARCTION
     Dosage: 0.75 MG/KG (FIRST PROCEDURE), INTRAVENOUS BOLUS
     Route: 040
     Dates: start: 20140124, end: 20140124
  2. ANGIOMAX [Suspect]
     Dosage: 0.75 MG/KG (FIRST PROCEDURE), INTRAVENOUS BOLUS
     Route: 040
     Dates: start: 20140124, end: 20140124
  3. ASPEGIC (ACETYLSALICYLATE LYSINE) (UNKNOWN) (ACETYLSALICYLATE LYSINE) [Concomitant]
  4. EFIENT (PRASUGREL HYDROCHLORIDE) (UNKNOWN) (PRASUGREL HYDROCHLORIDE) [Concomitant]
  5. REOPRO (ABCIXIMAB) (UNKONWN) (ABCIXIMAB) [Concomitant]
  6. HEPARIN (HEPARIN) (HEPARIN) [Concomitant]

REACTIONS (3)
  - Haemoptysis [None]
  - Pulmonary alveolar haemorrhage [None]
  - Cough [None]
